FAERS Safety Report 9324807 (Version 1)
Quarter: 2013Q2

REPORT INFORMATION
  Report Type: Spontaneous
  Country: US (occurrence: US)
  Receive Date: 20130603
  Receipt Date: 20130603
  Transmission Date: 20140414
  Serious: No
  Sender: FDA-Public Use
  Company Number: US-TEVA-409235USA

PATIENT
  Age: 58 Year
  Sex: Female
  Weight: 63.56 kg

DRUGS (2)
  1. QVAR [Suspect]
     Indication: ASTHMA
     Dates: start: 20121015
  2. VENTOLIN [Concomitant]
     Indication: ASTHMA
     Dates: start: 20121015

REACTIONS (4)
  - Upper respiratory tract infection [Recovered/Resolved]
  - Cough [Recovered/Resolved]
  - Increased upper airway secretion [Recovered/Resolved]
  - Pyrexia [Recovered/Resolved]
